FAERS Safety Report 8021933-3 (Version None)
Quarter: 2011Q4

REPORT INFORMATION
  Report Type: 
  Country: None (occurrence: None)
  Receive Date: 20111230
  Receipt Date: 20111219
  Transmission Date: 20120403
  Serious: Yes (Life-Threatening, Hospitalization, Disabling, Other)
  Sender: FDA-Public Use
  Company Number: 2011MA017787

PATIENT
  Sex: Male
  Weight: 67.586 kg

DRUGS (28)
  1. DUONEB [Concomitant]
  2. FLOMAX [Concomitant]
  3. HYDROCHLOROTHIAZIDE [Concomitant]
  4. NITROGLYCERIN [Concomitant]
  5. SYMBICORT [Concomitant]
  6. VICODIN [Concomitant]
  7. VISTARIL [Concomitant]
  8. ALPRAZOLAM [Concomitant]
  9. AUGMENTIN '125' [Concomitant]
  10. AZMACORT [Concomitant]
  11. MORPHINE [Concomitant]
  12. NORVASC [Concomitant]
  13. ZITHROMAX [Concomitant]
  14. DIGOXIN [Suspect]
     Indication: PRODUCT USED FOR UNKNOWN INDICATION
     Dosage: 250 MCG, QD, PO
     Route: 048
     Dates: start: 20030411, end: 20080528
  15. ASPIRIN [Concomitant]
  16. ATENOLOL [Concomitant]
  17. LOPRESSOR [Concomitant]
  18. PHENERGAN [Concomitant]
  19. PROVENTIL [Concomitant]
  20. CARDIZEM [Concomitant]
  21. SINEMET [Concomitant]
  22. HEPARIN [Concomitant]
  23. PERCODAN-DEMI [Concomitant]
  24. XOPENEX [Concomitant]
  25. AVELOX [Concomitant]
  26. DILAUDID [Concomitant]
  27. OXYCONTIN [Concomitant]
  28. SOLU-MEDROL [Concomitant]

REACTIONS (65)
  - GOUTY ARTHRITIS [None]
  - BRONCHITIS [None]
  - CARDIOMEGALY [None]
  - ANGINA PECTORIS [None]
  - ARRHYTHMIA [None]
  - ATRIOVENTRICULAR BLOCK FIRST DEGREE [None]
  - EMPHYSEMA [None]
  - MALAISE [None]
  - PULMONARY EMBOLISM [None]
  - REFUSAL OF TREATMENT BY PATIENT [None]
  - PNEUMONIA [None]
  - INTERVERTEBRAL DISC PROTRUSION [None]
  - SUPRAVENTRICULAR EXTRASYSTOLES [None]
  - PNEUMOTHORAX [None]
  - HAEMORRHAGIC DIATHESIS [None]
  - SINUS ARREST [None]
  - CYST RUPTURE [None]
  - SINUS BRADYCARDIA [None]
  - BLOOD GLUCOSE INCREASED [None]
  - PALPITATIONS [None]
  - ISCHAEMIA [None]
  - EPISTAXIS [None]
  - HYPERLIPIDAEMIA [None]
  - RENAL FAILURE CHRONIC [None]
  - VENTRICULAR EXTRASYSTOLES [None]
  - ELECTROCARDIOGRAM T WAVE INVERSION [None]
  - NODAL RHYTHM [None]
  - AORTIC ANEURYSM [None]
  - ATELECTASIS [None]
  - CORONARY ARTERY DISEASE [None]
  - MYOCARDIAL ISCHAEMIA [None]
  - LUNG NEOPLASM MALIGNANT [None]
  - SPUTUM PURULENT [None]
  - RESPIRATORY DISTRESS [None]
  - CHRONIC RESPIRATORY FAILURE [None]
  - CHEST DISCOMFORT [None]
  - SPINAL OSTEOARTHRITIS [None]
  - ABSCESS [None]
  - DYSPNOEA EXERTIONAL [None]
  - MYOCARDIAL INFARCTION [None]
  - COUGH [None]
  - TACHYCARDIA [None]
  - SINUS ARRHYTHMIA [None]
  - DERMAL CYST [None]
  - BLOOD PRESSURE DIASTOLIC DECREASED [None]
  - HYPERTENSION [None]
  - HAEMATURIA [None]
  - ARTERIOSCLEROSIS CORONARY ARTERY [None]
  - ASTHENIA [None]
  - FATIGUE [None]
  - CARDIAC ARREST [None]
  - DIARRHOEA [None]
  - PULMONARY FIBROSIS [None]
  - CHRONIC OBSTRUCTIVE PULMONARY DISEASE [None]
  - ANGINA UNSTABLE [None]
  - DIZZINESS [None]
  - ATRIOVENTRICULAR BLOCK SECOND DEGREE [None]
  - PRESYNCOPE [None]
  - PULMONARY MASS [None]
  - TREMOR [None]
  - PARKINSON'S DISEASE [None]
  - CONDITION AGGRAVATED [None]
  - BREATH SOUNDS ABNORMAL [None]
  - SICK SINUS SYNDROME [None]
  - SPINAL COLUMN STENOSIS [None]
